FAERS Safety Report 5463111-8 (Version None)
Quarter: 2007Q3

REPORT INFORMATION
  Report Type: 
  Country: None (occurrence: None)
  Receive Date: 20070918
  Receipt Date: 20070918
  Transmission Date: 20080115
  Serious: Yes (Hospitalization, Disabling, Other)
  Sender: FDA-Public Use
  Company Number: None

PATIENT
  Age: 67 Year
  Sex: Female
  Weight: 61.2356 kg

DRUGS (4)
  1. XIFAXAN [Suspect]
     Indication: GASTROINTESTINAL DISORDER
     Dosage: 3 PER DAY TO 1 PER FOR 2 WKS DECLINING PO
     Route: 048
     Dates: start: 20070501, end: 20070515
  2. XIFAXAN [Suspect]
     Indication: OVERGROWTH BACTERIAL
     Dosage: 3 PER DAY TO 1 PER FOR 2 WKS DECLINING PO
     Route: 048
     Dates: start: 20070501, end: 20070515
  3. XIFAXAN [Suspect]
     Indication: GASTROINTESTINAL DISORDER
     Dosage: 1 PER DAY FOR 6 WEEKS ONCE PO
     Route: 048
     Dates: start: 20070606, end: 20070725
  4. XIFAXAN [Suspect]
     Indication: OVERGROWTH BACTERIAL
     Dosage: 1 PER DAY FOR 6 WEEKS ONCE PO
     Route: 048
     Dates: start: 20070606, end: 20070725

REACTIONS (7)
  - ANAEMIA [None]
  - DRUG HYPERSENSITIVITY [None]
  - MALAISE [None]
  - NEPHRITIS INTERSTITIAL [None]
  - NO THERAPEUTIC RESPONSE [None]
  - RENAL FAILURE ACUTE [None]
  - VOMITING [None]
